FAERS Safety Report 12201753 (Version 1)
Quarter: 2016Q1

REPORT INFORMATION
  Report Type: Spontaneous
  Country: US (occurrence: US)
  Receive Date: 20160322
  Receipt Date: 20160322
  Transmission Date: 20160526
  Serious: No
  Sender: FDA-Public Use
  Company Number: US-SA-2016SA031764

PATIENT
  Sex: Male

DRUGS (1)
  1. NASACORT ALLERGY 24HR [Suspect]
     Active Substance: TRIAMCINOLONE ACETONIDE
     Indication: HYPERSENSITIVITY
     Dosage: DOSE: 2 SPRAYS/ NOSTRIL?START DATE: 6-7 YEAR AGO
     Route: 045

REACTIONS (4)
  - Nasal dryness [Unknown]
  - Therapeutic response decreased [Unknown]
  - Productive cough [Unknown]
  - Nasal discomfort [Unknown]
